FAERS Safety Report 6637312-7 (Version None)
Quarter: 2010Q1

REPORT INFORMATION
  Report Type: 
  Country: None (occurrence: None)
  Receive Date: 20100316
  Receipt Date: 20100211
  Transmission Date: 20100710
  Serious: No
  Sender: FDA-Public Use
  Company Number: US-ABBOTT-10P-163-0626494-00

PATIENT

DRUGS (2)
  1. TRILIPIX [Suspect]
     Indication: HYPERTRIGLYCERIDAEMIA
     Route: 048
  2. TRILIPIX [Suspect]
     Route: 048

REACTIONS (1)
  - BLOOD TRIGLYCERIDES ABNORMAL [None]
